FAERS Safety Report 14200378 (Version 2)
Quarter: 2018Q3

REPORT INFORMATION
  Report Type: Spontaneous
  Country: US (occurrence: US)
  Receive Date: 20171117
  Receipt Date: 20180711
  Transmission Date: 20181010
  Serious: No
  Sender: FDA-Public Use
  Company Number: US-PFIZER INC-2017491288

PATIENT
  Age: 64 Year
  Sex: Female

DRUGS (1)
  1. EUCRISA [Suspect]
     Active Substance: CRISABOROLE
     Indication: SKIN DISORDER
     Dosage: 1 DF, 2X/DAY
     Route: 061
     Dates: start: 20171101, end: 20171113

REACTIONS (4)
  - Pruritus [Unknown]
  - Skin lesion [Unknown]
  - Drug ineffective [Unknown]
  - Skin haemorrhage [Unknown]

NARRATIVE: CASE EVENT DATE: 201711
